FAERS Safety Report 5891937-5 (Version None)
Quarter: 2008Q3

REPORT INFORMATION
  Report Type: 
  Country: None (occurrence: None)
  Receive Date: 20080908
  Receipt Date: 20080722
  Transmission Date: 20090109
  Serious: No
  Sender: FDA-Public Use
  Company Number: 002#1#2008-00546

PATIENT
  Age: 77 Year
  Sex: Female

DRUGS (13)
  1. NEUPRO [Suspect]
     Dosage: 6MG/24H, 1 IN 1 D, TRANSDERMAL : MG/24H, 1 IN 1 D, TRANSDERMAL
     Route: 062
     Dates: start: 20071201, end: 20080601
  2. NEUPRO [Suspect]
     Dosage: 6MG/24H, 1 IN 1 D, TRANSDERMAL : MG/24H, 1 IN 1 D, TRANSDERMAL
     Route: 062
     Dates: start: 20080701
  3. MIRAPEX [Suspect]
     Dosage: 1MG, 3 IN 1 D
  4. STALEVO 100 [Concomitant]
  5. SINEMET [Concomitant]
  6. SINEMET CR [Concomitant]
  7. AZILECT [Concomitant]
  8. COUMADIN [Concomitant]
  9. ZETIA [Concomitant]
  10. LISINOPRIL [Concomitant]
  11. PRAVACHOL [Concomitant]
  12. PAXIL [Concomitant]
  13. ATENOLOL [Concomitant]

REACTIONS (3)
  - FALL [None]
  - HALLUCINATION [None]
  - PARKINSON'S DISEASE [None]
